FAERS Safety Report 11490834 (Version 3)
Quarter: 2016Q3

REPORT INFORMATION
  Report Type: Spontaneous
  Country: US (occurrence: US)
  Receive Date: 20150910
  Receipt Date: 20160701
  Transmission Date: 20161109
  Serious: Yes (Other)
  Sender: FDA-Public Use
  Company Number: US-SA-2015SA135415

PATIENT
  Age: 63 Year
  Sex: Female
  Weight: 112 kg

DRUGS (2)
  1. SOLOSTAR [Concomitant]
     Active Substance: DEVICE
  2. LANTUS SOLOSTAR [Suspect]
     Active Substance: INSULIN GLARGINE
     Indication: TYPE 2 DIABETES MELLITUS
     Dosage: START DATE: 1-2 YEARS DOSE:60 UNIT(S)
     Route: 065

REACTIONS (2)
  - Visual acuity reduced [Unknown]
  - Drug administration error [Unknown]
